FAERS Safety Report 7491190-5 (Version None)
Quarter: 2011Q2

REPORT INFORMATION
  Report Type: 
  Country: None (occurrence: None)
  Receive Date: 20110519
  Receipt Date: 20110509
  Transmission Date: 20111010
  Serious: Yes (Hospitalization)
  Sender: FDA-Public Use
  Company Number: JP-JNJFOC-20110505252

PATIENT
  Sex: Male
  Weight: 65 kg

DRUGS (2)
  1. GOLIMUMAB [Suspect]
     Indication: RHEUMATOID ARTHRITIS
     Route: 058
     Dates: start: 20110502
  2. GOLIMUMAB [Suspect]
     Route: 058
     Dates: start: 20090312

REACTIONS (1)
  - CEREBRAL HAEMORRHAGE [None]
